FAERS Safety Report 10963563 (Version 1)
Quarter: 2015Q1

REPORT INFORMATION
  Report Type: Spontaneous
  Country: US (occurrence: None)
  Receive Date: 20150226
  Receipt Date: 20150226
  Transmission Date: 20150721
  Serious: Yes (Other)
  Sender: FDA-Public Use
  Company Number: TPA2012A02817

PATIENT
  Age: 65 Year
  Sex: Male
  Weight: 127.01 kg

DRUGS (8)
  1. DIABETA [Concomitant]
     Active Substance: GLYBURIDE
  2. ACTOS [Suspect]
     Active Substance: PIOGLITAZONE HYDROCHLORIDE
     Indication: TYPE 2 DIABETES MELLITUS
     Route: 048
  3. NATEGLINIDE. [Concomitant]
     Active Substance: NATEGLINIDE
  4. OMEPRAZOLE. [Concomitant]
     Active Substance: OMEPRAZOLE
  5. PRAVASTATIN SODIUM. [Concomitant]
     Active Substance: PRAVASTATIN SODIUM
  6. NAPROXEN SODIUM (NAPROXEN SODIUM) [Concomitant]
  7. AMLODIPINE BESYLATE (AMLODIPINE BESILATE) [Concomitant]
     Active Substance: AMLODIPINE BESYLATE
  8. METFORMIN [Concomitant]
     Active Substance: METFORMIN HYDROCHLORIDE

REACTIONS (1)
  - Bladder cancer [None]

NARRATIVE: CASE EVENT DATE: 201110
